FAERS Safety Report 5358775-3 (Version None)
Quarter: 2007Q2

REPORT INFORMATION
  Report Type: 
  Country: None (occurrence: None)
  Receive Date: 20070615
  Receipt Date: 20070605
  Transmission Date: 20071010
  Serious: Yes (Hospitalization)
  Sender: FDA-Public Use
  Company Number: US-AMGEN-US228187

PATIENT
  Sex: Female

DRUGS (2)
  1. ENBREL [Suspect]
     Indication: RHEUMATOID ARTHRITIS
     Route: 058
     Dates: start: 20060426
  2. METHOTREXATE [Concomitant]
     Route: 065
     Dates: start: 20050101

REACTIONS (3)
  - INTERVERTEBRAL DISC PROTRUSION [None]
  - PNEUMONIA [None]
  - SPINAL FRACTURE [None]
